FAERS Safety Report 7767777-9 (Version None)
Quarter: 2011Q3

REPORT INFORMATION
  Report Type: 
  Country: None (occurrence: None)
  Receive Date: 20110922
  Receipt Date: 20101216
  Transmission Date: 20111222
  Serious: No
  Sender: FDA-Public Use
  Company Number: US-ASTRAZENECA-2010SE59506

PATIENT
  Age: 17 Year
  Sex: Male
  Weight: 79.4 kg

DRUGS (2)
  1. LAMICTAL [Concomitant]
  2. SEROQUEL [Suspect]
     Route: 048

REACTIONS (2)
  - ROAD TRAFFIC ACCIDENT [None]
  - DRUG SCREEN FALSE POSITIVE [None]
